FAERS Safety Report 4462198-9 (Version None)
Quarter: 2004Q3

REPORT INFORMATION
  Report Type: 
  Country: None (occurrence: None)
  Receive Date: 20040928
  Receipt Date: 20040922
  Transmission Date: 20050211
  Serious: Yes (Other)
  Sender: FDA-Public Use
  Company Number: 002775

PATIENT
  Sex: Female

DRUGS (7)
  1. MEDROXYPROGESTERONE ACETATE [Suspect]
     Dosage: ORAL
     Route: 048
  2. PREMPRO [Suspect]
  3. PREMARIN [Suspect]
  4. PROVERA [Suspect]
  5. PREMPHASE (PREMARIN;CYCRIN 14/14) [Suspect]
  6. CYCRIN [Suspect]
  7. MENEST [Suspect]

REACTIONS (1)
  - BREAST CANCER FEMALE [None]
